FAERS Safety Report 18607447 (Version 4)
Quarter: 2021Q2

REPORT INFORMATION
  Report Type: Spontaneous
  Country: US (occurrence: US)
  Receive Date: 20201212
  Receipt Date: 20210402
  Transmission Date: 20210717
  Serious: No
  Sender: FDA-Public Use
  Company Number: US-LUPIN PHARMACEUTICALS INC.-2020-08109

PATIENT
  Age: 42 Year
  Sex: Male
  Weight: 108.84 kg

DRUGS (1)
  1. ALBUTEROL SULFATE INHALATION AEROSOL, 90 MCG/ACTUATION [Suspect]
     Active Substance: ALBUTEROL SULFATE
     Indication: ASTHMA
     Dosage: 2 PUFFS Q 4 TO 6 HOURS AS NEEDED
     Dates: start: 20201021

REACTIONS (4)
  - Drug dose omission by device [Unknown]
  - No adverse event [Unknown]
  - Device delivery system issue [Unknown]
  - Device maintenance issue [Unknown]

NARRATIVE: CASE EVENT DATE: 20201023
